FAERS Safety Report 7448482-5 (Version None)
Quarter: 2011Q2

REPORT INFORMATION
  Report Type: 
  Country: None (occurrence: None)
  Receive Date: 20110429
  Receipt Date: 20100610
  Transmission Date: 20111010
  Serious: No
  Sender: FDA-Public Use
  Company Number: US-ASTRAZENECA-2010SE27110

PATIENT
  Sex: Female

DRUGS (2)
  1. NEXIUM [Suspect]
     Route: 048
     Dates: start: 20100607
  2. PROMETHAZINE [Concomitant]

REACTIONS (3)
  - CHEST PAIN [None]
  - EATING DISORDER [None]
  - CHROMATURIA [None]
